FAERS Safety Report 6093012-6 (Version None)
Quarter: 2009Q1

REPORT INFORMATION
  Report Type: 
  Country: None (occurrence: None)
  Receive Date: 20090224
  Receipt Date: 20090211
  Transmission Date: 20090719
  Serious: Yes (Congenital Anomaly)
  Sender: FDA-Public Use
  Company Number: 2009AP000543

PATIENT
  Sex: Male

DRUGS (1)
  1. PAROXETINE HCL [Suspect]
     Dosage: TRPL
     Route: 064

REACTIONS (4)
  - CONGENITAL ANOMALY [None]
  - CRANIOFACIAL DYSOSTOSIS [None]
  - MATERNAL DRUGS AFFECTING FOETUS [None]
  - VENTRICULAR SEPTAL DEFECT [None]
